FAERS Safety Report 18734234 (Version 1)
Quarter: 2021Q1

REPORT INFORMATION
  Report Type: Not Available
  Country: US (occurrence: US)
  Receive Date: 20210113
  Receipt Date: 20210113
  Transmission Date: 20210419
  Serious: No
  Sender: FDA-Public Use
  Company Number: US-NEUROCRINE BIOSCIENCES INC.-2021NBI00028

PATIENT
  Age: 52 Year
  Sex: Female

DRUGS (11)
  1. FLUOXETINE [Concomitant]
     Active Substance: FLUOXETINE HYDROCHLORIDE
  2. OXCARBAZEPINE. [Concomitant]
     Active Substance: OXCARBAZEPINE
  3. PROCHLORPERAZINE. [Concomitant]
     Active Substance: PROCHLORPERAZINE
  4. ABILIFY [Concomitant]
     Active Substance: ARIPIPRAZOLE
  5. INGREZZA [Suspect]
     Active Substance: VALBENAZINE
     Indication: TARDIVE DYSKINESIA
     Route: 048
     Dates: start: 20180124
  6. ATORVASTATIN [Concomitant]
     Active Substance: ATORVASTATIN
  7. HYDROXYZINE [Concomitant]
     Active Substance: HYDROXYZINE HYDROCHLORIDE
  8. PRAZOSIN. [Concomitant]
     Active Substance: PRAZOSIN
  9. LAMICTAL [Concomitant]
     Active Substance: LAMOTRIGINE
  10. GABAPENTIN. [Concomitant]
     Active Substance: GABAPENTIN
  11. BUPROPION. [Concomitant]
     Active Substance: BUPROPION

REACTIONS (1)
  - Therapeutic product effect decreased [Unknown]
